FAERS Safety Report 10120663 (Version 2)
Quarter: 2014Q4

REPORT INFORMATION
  Report Type: Other
  Country: US (occurrence: US)
  Receive Date: 20140425
  Receipt Date: 20141125
  Transmission Date: 20150528
  Serious: Yes (Death, Hospitalization, Other)
  Sender: FDA-Public Use
  Company Number: US-GSKPPD-2014GSK008664

PATIENT
  Age: 53 Year
  Sex: Female

DRUGS (6)
  1. AVANDIA [Suspect]
     Active Substance: ROSIGLITAZONE MALEATE
     Indication: DIABETES MELLITUS
     Dosage: AVANDIA WAS NOT LISTED AMONG THE PATIENT^S RECORDS REVIEWED.
     Route: 048
  2. LOPRESSOR [Concomitant]
     Active Substance: METOPROLOL TARTRATE
  3. PLAVIX [Concomitant]
     Active Substance: CLOPIDOGREL BISULFATE
  4. ASPIRIN. [Concomitant]
     Active Substance: ASPIRIN
  5. HEPARIN [Concomitant]
     Active Substance: HEPARIN SODIUM
     Dosage: 10000 UNITS
     Route: 058
  6. HYDRALAZINE [Concomitant]
     Active Substance: HYDRALAZINE HYDROCHLORIDE

REACTIONS (3)
  - Myocardial infarction [Fatal]
  - Cerebrovascular accident [Recovered/Resolved]
  - Myocardial infarction [Recovered/Resolved]

NARRATIVE: CASE EVENT DATE: 20061202
